FAERS Safety Report 12408083 (Version 3)
Quarter: 2016Q3

REPORT INFORMATION
  Report Type: Spontaneous
  Country: DE (occurrence: DE)
  Receive Date: 20160526
  Receipt Date: 20160815
  Transmission Date: 20161109
  Serious: Yes (Death, Disabling)
  Sender: FDA-Public Use
  Company Number: DE-ROCHE-1763844

PATIENT
  Age: 76 Year
  Sex: Female
  Weight: 62 kg

DRUGS (10)
  1. MABTHERA [Suspect]
     Active Substance: RITUXIMAB
     Dosage: TOGETHER WITH BENDAMUSTINE.
     Route: 042
     Dates: start: 20160330, end: 20160405
  2. MABTHERA [Suspect]
     Active Substance: RITUXIMAB
     Dosage: TOGETHER WITH BENDAMUSTINE.
     Route: 042
     Dates: start: 20160203
  3. VINCRISTINE [Concomitant]
     Active Substance: VINCRISTINE
     Indication: NON-HODGKIN^S LYMPHOMA
     Dosage: PREPHASE TREATMENT
     Route: 065
     Dates: start: 20160104, end: 20160104
  4. PREDNISOLON [Concomitant]
     Active Substance: PREDNISOLONE
     Indication: NON-HODGKIN^S LYMPHOMA
     Dosage: PREPHASE TREATMENT.
     Route: 042
     Dates: start: 20160104, end: 20160104
  5. BENDAMUSTINE [Suspect]
     Active Substance: BENDAMUSTINE
     Indication: NON-HODGKIN^S LYMPHOMA
     Route: 065
     Dates: start: 20160106
  6. BENDAMUSTINE [Suspect]
     Active Substance: BENDAMUSTINE
     Route: 065
     Dates: start: 20160303
  7. MABTHERA [Suspect]
     Active Substance: RITUXIMAB
     Indication: NON-HODGKIN^S LYMPHOMA
     Dosage: TOGETHER WITH BENDAMUSTINE.
     Route: 042
     Dates: start: 20160106
  8. MABTHERA [Suspect]
     Active Substance: RITUXIMAB
     Dosage: TOGETHER WITH BENDAMUSTINE.
     Route: 042
     Dates: start: 20160303
  9. BENDAMUSTINE [Suspect]
     Active Substance: BENDAMUSTINE
     Route: 065
     Dates: start: 20160330
  10. BENDAMUSTINE [Suspect]
     Active Substance: BENDAMUSTINE
     Route: 065
     Dates: start: 20160203

REACTIONS (1)
  - Progressive multifocal leukoencephalopathy [Fatal]

NARRATIVE: CASE EVENT DATE: 20160503
